FAERS Safety Report 9341019 (Version 1)
Quarter: 2013Q2

REPORT INFORMATION
  Report Type: Other
  Country: IT (occurrence: IT)
  Receive Date: 20130610
  Receipt Date: 20130610
  Transmission Date: 20140414
  Serious: Yes (Other)
  Sender: FDA-Public Use
  Company Number: IT-ACTAVIS-2013-10669

PATIENT
  Sex: Female

DRUGS (1)
  1. ALPRAZOLAM (UNKNOWN) [Suspect]
     Indication: INTENTIONAL SELF-INJURY
     Dosage: 10 G, SINGLE
     Route: 048
     Dates: start: 20130401, end: 20130401

REACTIONS (3)
  - Intentional drug misuse [Recovering/Resolving]
  - Overdose [Recovering/Resolving]
  - No adverse event [Recovering/Resolving]
